FAERS Safety Report 21453660 (Version 3)
Quarter: 2023Q1

REPORT INFORMATION
  Report Type: Spontaneous
  Country: PT (occurrence: PT)
  Receive Date: 20221013
  Receipt Date: 20230103
  Transmission Date: 20230418
  Serious: Yes (Other)
  Sender: FDA-Public Use
  Company Number: None

PATIENT
  Age: 76 Year
  Sex: Male
  Weight: 84 kg

DRUGS (15)
  1. VFEND [Suspect]
     Active Substance: VORICONAZOLE
     Indication: Bronchopulmonary aspergillosis
     Dosage: 300 MG, 2X/DAY
     Route: 048
     Dates: start: 20220913, end: 20221001
  2. BISOPROLOL [Concomitant]
     Active Substance: BISOPROLOL
     Dosage: 2.5 MG
     Route: 048
  3. APIXABAN [Concomitant]
     Active Substance: APIXABAN
     Indication: Thrombosis prophylaxis
     Dosage: 5 MG
     Route: 048
  4. ATORVASTATIN [Concomitant]
     Active Substance: ATORVASTATIN
     Indication: Dyslipidaemia
     Dosage: 20 MG
     Route: 048
  5. ACETAMINOPHEN [Concomitant]
     Active Substance: ACETAMINOPHEN
     Dosage: UNK
  6. SPIRONOLACTONE [Concomitant]
     Active Substance: SPIRONOLACTONE
     Dosage: 25 MG
     Route: 048
  7. CLONIX [CLONIXIN] [Concomitant]
     Dosage: 300 MG
     Route: 048
  8. IPRATROPIUM BROMIDE [Concomitant]
     Active Substance: IPRATROPIUM BROMIDE
     Dosage: 20 UG
     Route: 055
  9. ALBUTEROL [Concomitant]
     Active Substance: ALBUTEROL
     Dosage: 100 UG
     Route: 055
  10. BECLOTAIDE FORTE [Concomitant]
     Dosage: 250 UG
     Route: 055
  11. TANSULOSINA [Concomitant]
     Indication: Benign prostatic hyperplasia
     Dosage: 0.4 MG
     Route: 048
  12. PANTOPRAZOLE [Concomitant]
     Active Substance: PANTOPRAZOLE
     Dosage: 20 MG
     Route: 048
  13. TIAPRIDE [Concomitant]
     Active Substance: TIAPRIDE
     Indication: Alcohol withdrawal syndrome
     Dosage: UNK
  14. TIAMINA [THIAMINE] [Concomitant]
     Indication: Alcohol withdrawal syndrome
     Dosage: UNK
  15. QUETIAPINE [Concomitant]
     Active Substance: QUETIAPINE
     Dosage: IN THE MORNING AND AT NIGHT

REACTIONS (8)
  - Hallucination, visual [Unknown]
  - Fall [Recovered/Resolved]
  - Agitation [Unknown]
  - Disorientation [Unknown]
  - Concussion [Unknown]
  - Condition aggravated [Unknown]
  - Altered state of consciousness [Unknown]
  - Off label use [Unknown]

NARRATIVE: CASE EVENT DATE: 20220913
